FAERS Safety Report 22195814 (Version 2)
Quarter: 2023Q2

REPORT INFORMATION
  Report Type: Spontaneous
  Country: US (occurrence: US)
  Receive Date: 20230411
  Receipt Date: 20230614
  Transmission Date: 20230721
  Serious: No
  Sender: FDA-Public Use
  Company Number: US-BIOGEN-2023BI01191101

PATIENT
  Sex: Female

DRUGS (1)
  1. SPINRAZA [Suspect]
     Active Substance: NUSINERSEN
     Indication: Spinal muscular atrophy
     Route: 050

REACTIONS (6)
  - Asthenia [Not Recovered/Not Resolved]
  - Scoliosis [Not Recovered/Not Resolved]
  - Abdominal pain upper [Not Recovered/Not Resolved]
  - Motor dysfunction [Unknown]
  - Facial paresis [Unknown]
  - Eye movement disorder [Unknown]

NARRATIVE: CASE EVENT DATE: 20230101
